FAERS Safety Report 9362739 (Version 1)
Quarter: 2013Q2

REPORT INFORMATION
  Report Type: Spontaneous
  Country: NO (occurrence: NO)
  Receive Date: 20130622
  Receipt Date: 20130622
  Transmission Date: 20140414
  Serious: Yes (Hospitalization, Other)
  Sender: FDA-Public Use
  Company Number: NO-UCBSA-089042

PATIENT
  Age: 71 Year
  Sex: Female

DRUGS (5)
  1. CIMZIA [Suspect]
     Indication: RHEUMATOID ARTHRITIS
     Route: 058
     Dates: start: 20130211, end: 201304
  2. METEX [Suspect]
     Indication: RHEUMATOID ARTHRITIS
     Route: 058
     Dates: start: 20120919, end: 201304
  3. SYMBICORT TURBUHALER [Concomitant]
     Route: 055
  4. SAROTEX [Concomitant]
     Route: 048
  5. FOLSYRE ANF [Concomitant]
     Route: 048

REACTIONS (2)
  - Alveolitis allergic [Recovering/Resolving]
  - Inappropriate schedule of drug administration [Unknown]
